FAERS Safety Report 16073608 (Version 1)
Quarter: 2019Q1

REPORT INFORMATION
  Report Type: Report from Study
  Country: FR (occurrence: FR)
  Receive Date: 20190314
  Receipt Date: 20190314
  Transmission Date: 20190418
  Serious: Yes (Hospitalization)
  Sender: FDA-Public Use
  Company Number: PHHO2017FR015915

PATIENT
  Age: 12 Year
  Sex: Male

DRUGS (3)
  1. DABRAFENIB [Suspect]
     Active Substance: DABRAFENIB
     Dosage: 110 MG, BID
     Route: 048
     Dates: start: 20171129, end: 20171129
  2. DABRAFENIB [Suspect]
     Active Substance: DABRAFENIB
     Indication: NEOPLASM
     Dosage: 110 MG, BID
     Route: 048
     Dates: start: 20171005, end: 20171116
  3. DABRAFENIB [Suspect]
     Active Substance: DABRAFENIB
     Dosage: 110 MG, BID
     Route: 048
     Dates: start: 20171120, end: 20171127

REACTIONS (3)
  - Pyrexia [Recovered/Resolved]
  - Staphylococcal infection [Recovered/Resolved]
  - Pyrexia [Recovered/Resolved]

NARRATIVE: CASE EVENT DATE: 20171114
